FAERS Safety Report 12061835 (Version 2)
Quarter: 2018Q1

REPORT INFORMATION
  Report Type: Spontaneous
  Country: CA (occurrence: CA)
  Receive Date: 20160210
  Receipt Date: 20180213
  Transmission Date: 20180508
  Serious: Yes (Hospitalization)
  Sender: FDA-Public Use
  Company Number: CA-TEVA-632607USA

PATIENT
  Age: 53 Year
  Sex: Female

DRUGS (2)
  1. PLAN B [Suspect]
     Active Substance: LEVONORGESTREL
     Dosage: 1 TAB FORMULA
     Route: 065
     Dates: start: 20150102, end: 20150102
  2. LORAZEPAM. [Concomitant]
     Active Substance: LORAZEPAM

REACTIONS (2)
  - Panic reaction [Unknown]
  - Blood prolactin increased [Unknown]
